FAERS Safety Report 5581431-3 (Version None)
Quarter: 2007Q4

REPORT INFORMATION
  Report Type: 
  Country: None (occurrence: None)
  Receive Date: 20071231
  Receipt Date: 20071231
  Transmission Date: 20080405
  Serious: Yes (Hospitalization)
  Sender: FDA-Public Use
  Company Number: None

PATIENT
  Age: 61 Year
  Sex: Male

DRUGS (2)
  1. WARFARIN SODIUM [Suspect]
     Indication: CARDIOVASCULAR DISORDER
     Dosage: 5MG EVERY DAY PO
     Route: 048
     Dates: start: 19920115
  2. WARFARIN SODIUM [Suspect]
     Indication: SURGERY
     Dosage: 5MG EVERY DAY PO
     Route: 048
     Dates: start: 19920115

REACTIONS (1)
  - HAEMORRHAGE [None]
